FAERS Safety Report 7044596-2 (Version None)
Quarter: 2010Q4

REPORT INFORMATION
  Report Type: 
  Country: None (occurrence: None)
  Receive Date: 20101014
  Receipt Date: 20101004
  Transmission Date: 20110411
  Serious: Yes (Other)
  Sender: FDA-Public Use
  Company Number: NL-ABBOTT-10P-114-0675894-00

PATIENT
  Sex: Male

DRUGS (8)
  1. LUPRON DEPOT [Suspect]
     Indication: PROSTATE CANCER
     Route: 058
     Dates: start: 20080827
  2. PAMIDRONIC INFUSION [Concomitant]
     Indication: PRODUCT USED FOR UNKNOWN INDICATION
  3. HYDROCHLOROTHIAZIDE [Concomitant]
     Indication: HYPERTENSION
     Route: 048
  4. METOPROLOL SUCCINATE [Concomitant]
     Indication: HYPERTENSION
     Route: 048
  5. OXAZEPAM [Concomitant]
     Indication: SEDATION
     Route: 048
  6. QUINAPRIL [Concomitant]
     Indication: HYPERTENSION
     Route: 048
  7. TOPAMIRATE [Concomitant]
     Indication: PRODUCT USED FOR UNKNOWN INDICATION
     Route: 048
  8. ZOLEDRONIC ACID [Concomitant]
     Indication: BONE NEOPLASM MALIGNANT
     Dosage: SOLUTION FOR INFUSION CONCENTRATE 0.8 MG/ML FLACON 5 ML
     Route: 042

REACTIONS (2)
  - AORTIC ANEURYSM [None]
  - HAIR GROWTH ABNORMAL [None]
